FAERS Safety Report 8267775-5 (Version None)
Quarter: 2012Q2

REPORT INFORMATION
  Report Type: 
  Country: None (occurrence: None)
  Receive Date: 20120405
  Receipt Date: 20120405
  Transmission Date: 20120825
  Serious: Yes (Hospitalization)
  Sender: FDA-Public Use
  Company Number: None

PATIENT
  Sex: Male
  Weight: 106 kg

DRUGS (1)
  1. FLUOROURACIL [Suspect]
     Dosage: 6606 MG
     Dates: end: 20120321

REACTIONS (6)
  - VOMITING [None]
  - BLOOD PRESSURE DECREASED [None]
  - NAUSEA [None]
  - HEPATIC STEATOSIS [None]
  - ASTHENIA [None]
  - BLOOD GLUCOSE INCREASED [None]
